FAERS Safety Report 13518946 (Version 1)
Quarter: 2017Q2

REPORT INFORMATION
  Report Type: Spontaneous
  Country: US (occurrence: US)
  Receive Date: 20170505
  Receipt Date: 20170505
  Transmission Date: 20170830
  Serious: No
  Sender: FDA-Public Use
  Company Number: US-SHIRE-US201710069

PATIENT
  Age: 60 Year
  Sex: Female
  Weight: 58.5 kg

DRUGS (1)
  1. XIIDRA [Suspect]
     Active Substance: LIFITEGRAST
     Indication: DRY EYE
     Dosage: UNK, UNKNOWN
     Route: 047
     Dates: start: 20170501, end: 20170502

REACTIONS (4)
  - Vision blurred [Unknown]
  - Upper-airway cough syndrome [Unknown]
  - Dysgeusia [Unknown]
  - Instillation site pain [Unknown]

NARRATIVE: CASE EVENT DATE: 201705
